FAERS Safety Report 8204970-5 (Version None)
Quarter: 2012Q1

REPORT INFORMATION
  Report Type: 
  Country: None (occurrence: None)
  Receive Date: 20120313
  Receipt Date: 20120303
  Transmission Date: 20120608
  Serious: No
  Sender: FDA-Public Use
  Company Number: US-BAYER-2012-022892

PATIENT
  Age: 45 Year
  Sex: Female
  Weight: 107 kg

DRUGS (6)
  1. ROBAXIN [Concomitant]
  2. NON DROWSY SINUS CONGESTION AND RELIEF [Concomitant]
  3. ALEVE (CAPLET) [Suspect]
     Indication: NASOPHARYNGITIS
     Route: 048
  4. KLONOPIN [Concomitant]
  5. BACLOFEN [Concomitant]
  6. MOBIC [Concomitant]

REACTIONS (1)
  - NO ADVERSE EVENT [None]
